FAERS Safety Report 23800587 (Version 1)
Quarter: 2024Q2

REPORT INFORMATION
  Report Type: Spontaneous
  Country: US (occurrence: US)
  Receive Date: 20240430
  Receipt Date: 20240430
  Transmission Date: 20240716
  Serious: Yes (Other)
  Sender: FDA-Public Use
  Company Number: US-GLENMARK PHARMACEUTICALS-2024GMK089772

PATIENT

DRUGS (1)
  1. LACOSAMIDE [Suspect]
     Active Substance: LACOSAMIDE
     Indication: Trigeminal neuralgia
     Dosage: 50 MILLIGRAM, OD
     Route: 065
     Dates: start: 20240226, end: 20240316

REACTIONS (6)
  - Mental impairment [Unknown]
  - Brain fog [Unknown]
  - Ill-defined disorder [Unknown]
  - Memory impairment [Unknown]
  - Balance disorder [Unknown]
  - Product use in unapproved indication [Unknown]

NARRATIVE: CASE EVENT DATE: 20240101
